FAERS Safety Report 12285539 (Version 1)
Quarter: 2016Q2

REPORT INFORMATION
  Report Type: Spontaneous
  Country: DE (occurrence: DE)
  Receive Date: 20160420
  Receipt Date: 20160420
  Transmission Date: 20160815
  Serious: Yes (Other)
  Sender: FDA-Public Use
  Company Number: GXKR2016DE001820

PATIENT

DRUGS (3)
  1. ACETAMINOPHEN. [Suspect]
     Active Substance: ACETAMINOPHEN
     Indication: PYREXIA
     Dosage: BIS 4 X 500 MG
     Route: 048
     Dates: start: 20160304, end: 20160307
  2. NITROFURANTOIN. [Suspect]
     Active Substance: NITROFURANTOIN
     Indication: URINARY TRACT INFECTION
     Dosage: 3 X 100 MG
     Route: 048
     Dates: start: 20160304, end: 20160307
  3. STELARA [Concomitant]
     Active Substance: USTEKINUMAB
     Indication: PSORIASIS
     Dosage: 45 MG, Q3MO
     Route: 058
     Dates: start: 2014

REACTIONS (6)
  - Cardiovascular disorder [Recovering/Resolving]
  - Hyperbilirubinaemia [Recovering/Resolving]
  - Nausea [Recovering/Resolving]
  - Liver function test abnormal [Recovering/Resolving]
  - Pruritus [Recovering/Resolving]
  - Rash macular [Recovering/Resolving]

NARRATIVE: CASE EVENT DATE: 20160306
